FAERS Safety Report 25051945 (Version 1)
Quarter: 2025Q1

REPORT INFORMATION
  Report Type: Spontaneous
  Country: US (occurrence: US)
  Receive Date: 20250307
  Receipt Date: 20250307
  Transmission Date: 20250409
  Serious: No
  Sender: MYLAN
  Company Number: US-MYLANLABS-2025M1017669

PATIENT
  Sex: Female
  Weight: 48.99 kg

DRUGS (1)
  1. LEVOTHYROXINE SODIUM [Suspect]
     Active Substance: LEVOTHYROXINE SODIUM
     Indication: Product used for unknown indication

REACTIONS (4)
  - Blood thyroid stimulating hormone abnormal [Unknown]
  - Illness [Unknown]
  - Product substitution issue [Unknown]
  - Drug ineffective [Unknown]
